FAERS Safety Report 5779420-9 (Version None)
Quarter: 2008Q2

REPORT INFORMATION
  Report Type: 
  Country: None (occurrence: None)
  Receive Date: 20080619
  Receipt Date: 20080606
  Transmission Date: 20081010
  Serious: Yes (Other)
  Sender: FDA-Public Use
  Company Number: FR-ELI_LILLY_AND_COMPANY-FR200806001369

PATIENT
  Age: 60 Year
  Sex: Female

DRUGS (1)
  1. OPTRUMA [Suspect]
     Dosage: UNK, UNKNOWN
     Route: 048

REACTIONS (3)
  - BREAST ENLARGEMENT [None]
  - OCULAR HYPERTENSION [None]
  - VISUAL ACUITY REDUCED [None]
